FAERS Safety Report 16468242 (Version 1)
Quarter: 2019Q2

REPORT INFORMATION
  Report Type: Spontaneous
  Country: JP (occurrence: JP)
  Receive Date: 20190624
  Receipt Date: 20190624
  Transmission Date: 20190711
  Serious: Yes (Death, Hospitalization, Other)
  Sender: FDA-Public Use
  Company Number: JP-SAKK-BA201202567001

PATIENT
  Age: 44 Year
  Sex: Female
  Weight: 56 kg

DRUGS (14)
  1. LEUCON [ADENINE] [Concomitant]
     Indication: WHITE BLOOD CELL COUNT DECREASED
     Dosage: 20 MG, TID
     Route: 048
     Dates: start: 20110805, end: 20111205
  2. WYPAX [Concomitant]
     Active Substance: LORAZEPAM
     Indication: PROPHYLAXIS OF NAUSEA AND VOMITING
     Dosage: 0.5 MG, TID
     Route: 048
     Dates: start: 20110723, end: 20111130
  3. WYPAX [Concomitant]
     Active Substance: LORAZEPAM
     Indication: ANXIETY
  4. WYPAX [Concomitant]
     Active Substance: LORAZEPAM
     Indication: VOMITING
  5. KYTRIL [Concomitant]
     Active Substance: GRANISETRON HYDROCHLORIDE
     Indication: VOMITING
  6. NOVAMIN [PROCHLORPERAZINE MALEATE] [Concomitant]
     Indication: PROPHYLAXIS OF NAUSEA AND VOMITING
     Dosage: 5 MG, TID
     Route: 048
     Dates: start: 20110723, end: 20111201
  7. KYTRIL [Concomitant]
     Active Substance: GRANISETRON HYDROCHLORIDE
     Indication: PROPHYLAXIS OF NAUSEA AND VOMITING
     Dosage: 2 MG, QD
     Route: 048
     Dates: start: 20110723, end: 20111129
  8. KYTRIL [Concomitant]
     Active Substance: GRANISETRON HYDROCHLORIDE
     Indication: PROPHYLAXIS OF NAUSEA AND VOMITING
     Dosage: 3 MG, Q3W
     Route: 041
     Dates: start: 20111014, end: 20111125
  9. TAXOTERE [Suspect]
     Active Substance: DOCETAXEL
     Indication: BREAST CANCER
  10. TAXOTERE [Suspect]
     Active Substance: DOCETAXEL
     Indication: INVASIVE DUCTAL BREAST CARCINOMA
     Dosage: 3 CYCLES PERFORMED
     Route: 041
     Dates: start: 20111014, end: 20111125
  11. CEPHARANTHINE [Concomitant]
     Active Substance: CEPHARANTHINE
     Indication: WHITE BLOOD CELL COUNT DECREASED
     Dosage: 2 MG, TID
     Route: 048
     Dates: start: 20110805, end: 20111205
  12. DECADRON [Concomitant]
     Active Substance: DEXAMETHASONE
     Indication: PROPHYLAXIS OF NAUSEA AND VOMITING
     Dosage: 4 MG, BID
     Route: 048
     Dates: start: 20110723, end: 20111127
  13. DECADRON [Concomitant]
     Active Substance: DEXAMETHASONE
     Indication: PROPHYLAXIS OF NAUSEA AND VOMITING
     Dosage: 6.6 MG, Q3W
     Route: 041
     Dates: start: 20111014, end: 20111125
  14. MARZULENE [SODIUM GUALENATE] [Concomitant]
     Indication: GASTROENTERITIS
     Dosage: 0.5 G, TID
     Route: 048
     Dates: start: 20110723, end: 20111127

REACTIONS (17)
  - Loss of consciousness [Fatal]
  - Intestinal ischaemia [Fatal]
  - Disseminated intravascular coagulation [Fatal]
  - Gas gangrene [Fatal]
  - Bone marrow failure [Unknown]
  - Gastroenteritis [Fatal]
  - Abdominal pain [Fatal]
  - Necrotising colitis [Fatal]
  - Respiratory arrest [Fatal]
  - Multiple organ dysfunction syndrome [Fatal]
  - Septic shock [Fatal]
  - Clostridial infection [Fatal]
  - Dehydration [Fatal]
  - Diarrhoea [Fatal]
  - Neutrophil count decreased [Unknown]
  - Leukopenia [Unknown]
  - Vomiting [Fatal]

NARRATIVE: CASE EVENT DATE: 201112
